FAERS Safety Report 5734706-9 (Version None)
Quarter: 2008Q2

REPORT INFORMATION
  Report Type: 
  Country: None (occurrence: None)
  Receive Date: 20080508
  Receipt Date: 20080508
  Transmission Date: 20081010
  Serious: No
  Sender: FDA-Public Use
  Company Number: None

PATIENT
  Age: 76 Year
  Sex: Male
  Weight: 65.7716 kg

DRUGS (1)
  1. DIGITEK  .25MG  MYLAN BERTEK [Suspect]
     Indication: ATRIAL FIBRILLATION
     Dosage: .25MG ONCE DAILY PO
     Route: 048
     Dates: start: 20071227, end: 20080507

REACTIONS (9)
  - ASTHENIA [None]
  - CARDIOVASCULAR DISORDER [None]
  - DIARRHOEA [None]
  - DIZZINESS [None]
  - HYPERSOMNIA [None]
  - HYPOTENSION [None]
  - NAUSEA [None]
  - PHARMACEUTICAL PRODUCT COMPLAINT [None]
  - WEIGHT DECREASED [None]
